FAERS Safety Report 8174180-9 (Version None)
Quarter: 2012Q1

REPORT INFORMATION
  Report Type: 
  Country: None (occurrence: None)
  Receive Date: 20120224
  Receipt Date: 20111106
  Transmission Date: 20120608
  Serious: Yes (Life-Threatening)
  Sender: FDA-Public Use
  Company Number: GB-DEXPHARM-20111653

PATIENT
  Age: 59 Year
  Sex: Female

DRUGS (3)
  1. CHLORHEXIDINE GLUCONATE [Suspect]
     Indication: ALVEOLAR OSTEITIS
     Dosage: 10 ML MILLILITRE(S) DENTAL
     Route: 004
     Dates: start: 20111019, end: 20111019
  2. BETAHISTINE HYDROCHLORIDE [Concomitant]
  3. FLUOXETINE HCL [Concomitant]

REACTIONS (2)
  - ANAPHYLACTIC REACTION [None]
  - VOMITING [None]
